FAERS Safety Report 5804255-8 (Version None)
Quarter: 2008Q3

REPORT INFORMATION
  Report Type: 
  Country: None (occurrence: None)
  Receive Date: 20080709
  Receipt Date: 20080703
  Transmission Date: 20090109
  Serious: Yes (Hospitalization)
  Sender: FDA-Public Use
  Company Number: US-ASTRAZENECA-2008UW13014

PATIENT
  Age: 44 Year
  Sex: Male

DRUGS (2)
  1. SYMBICORT [Suspect]
     Dosage: 160/4.5 MCG
     Route: 055
  2. ADVAIR DISKUS 100/50 [Concomitant]

REACTIONS (4)
  - BURNING SENSATION [None]
  - HEART RATE INCREASED [None]
  - OVERDOSE [None]
  - TREMOR [None]
